FAERS Safety Report 4562716-6 (Version None)
Quarter: 2005Q1

REPORT INFORMATION
  Report Type: 
  Country: None (occurrence: None)
  Receive Date: 20050124
  Receipt Date: 20050105
  Transmission Date: 20050727
  Serious: Yes (Life-Threatening, Other)
  Sender: FDA-Public Use
  Company Number: 2005-00012

PATIENT

DRUGS (1)
  1. INTEGRILIN [Suspect]
     Dosage: 11.00 ML, INTRACARDIAC
     Route: 016
     Dates: start: 20041201

REACTIONS (1)
  - CARDIO-RESPIRATORY ARREST [None]
